FAERS Safety Report 7438134-X (Version None)
Quarter: 2011Q2

REPORT INFORMATION
  Report Type: 
  Country: None (occurrence: None)
  Receive Date: 20110421
  Receipt Date: 20110421
  Transmission Date: 20111010
  Serious: Yes (Death)
  Sender: FDA-Public Use
  Company Number: None

PATIENT
  Sex: Male

DRUGS (1)
  1. TORADOL [Suspect]
     Indication: PROCEDURAL PAIN
     Dates: start: 20100210, end: 20110212

REACTIONS (2)
  - DIALYSIS [None]
  - RENAL FAILURE [None]
